FAERS Safety Report 4533068-2 (Version None)
Quarter: 2004Q4

REPORT INFORMATION
  Report Type: 
  Country: None (occurrence: None)
  Receive Date: 20041206
  Receipt Date: 20041020
  Transmission Date: 20050328
  Serious: No
  Sender: FDA-Public Use
  Company Number: USA041081745

PATIENT
  Age: 65 Year
  Sex: Male

DRUGS (12)
  1. CYMBALTA [Suspect]
     Indication: DEPRESSION
     Dosage: 60 MG
     Dates: start: 20040923, end: 20040927
  2. ALTACE [Concomitant]
  3. NORVASC [Concomitant]
  4. ASPIRIN [Concomitant]
  5. LIPITOR [Concomitant]
  6. CALCIUM CITRATE [Concomitant]
  7. DARVOCET-N 100 [Concomitant]
  8. MIRALAX [Concomitant]
  9. FIBERCON (POLYCARBOPHIL CALCIUM) [Concomitant]
  10. TEMAZEPAM [Concomitant]
  11. GLUCOSAMINE CHONDROITIN [Concomitant]
  12. REMERON (MIRTAZAPINE ORIFARM) [Concomitant]

REACTIONS (1)
  - URINARY RETENTION [None]
